FAERS Safety Report 5359416-1 (Version None)
Quarter: 2007Q2

REPORT INFORMATION
  Report Type: 
  Country: None (occurrence: None)
  Receive Date: 20070615
  Receipt Date: 20070605
  Transmission Date: 20071010
  Serious: Yes (Other)
  Sender: FDA-Public Use
  Company Number: US-PFIZER INC-2007029818

PATIENT
  Age: 55 Year
  Sex: Male

DRUGS (6)
  1. LYRICA [Suspect]
     Indication: NEURALGIA
     Route: 048
  2. BACLOFEN [Concomitant]
     Route: 037
  3. DILAUDID [Concomitant]
     Route: 037
  4. BUPIVACAINE [Concomitant]
     Route: 037
  5. LAMICTAL [Concomitant]
  6. WELLBUTRIN [Concomitant]

REACTIONS (3)
  - AGGRESSION [None]
  - HALLUCINATION, VISUAL [None]
  - SOMNOLENCE [None]
